FAERS Safety Report 7271488-6 (Version None)
Quarter: 2011Q1

REPORT INFORMATION
  Report Type: 
  Country: None (occurrence: None)
  Receive Date: 20110128
  Receipt Date: 20110128
  Transmission Date: 20110831
  Serious: Yes (Other)
  Sender: FDA-Public Use
  Company Number: None

PATIENT
  Age: 13 Year
  Sex: Female

DRUGS (1)
  1. BUPROPION HYDROCHLORIDE (WELLBUTRIN XL) [Suspect]
     Indication: MAJOR DEPRESSION
     Dosage: 300MG
     Dates: start: 20080701, end: 20080901

REACTIONS (4)
  - LACERATION [None]
  - DEPRESSION [None]
  - INTENTIONAL SELF-INJURY [None]
  - CONDITION AGGRAVATED [None]
